FAERS Safety Report 14790207 (Version 2)
Quarter: 2018Q2

REPORT INFORMATION
  Report Type: Report from Study
  Country: MX (occurrence: MX)
  Receive Date: 20180423
  Receipt Date: 20180518
  Transmission Date: 20180711
  Serious: Yes (Other)
  Sender: FDA-Public Use
  Company Number: PHHY2018MX069817

PATIENT
  Sex: Female
  Weight: 60 kg

DRUGS (2)
  1. ENTRESTO [Suspect]
     Active Substance: SACUBITRIL\VALSARTAN
     Indication: MYOCARDITIS
     Dosage: 2 DF, BID (200 MG) (I IN THE MORNING AND 1 AT NIGHT)
     Route: 065
  2. INSULIN [Concomitant]
     Active Substance: INSULIN NOS
     Indication: DIABETES MELLITUS
     Dosage: 24 IU, QD (AT NIGHT)
     Route: 059

REACTIONS (4)
  - Product use in unapproved indication [Unknown]
  - Bipolar disorder [Unknown]
  - Malaise [Unknown]
  - Anxiety [Unknown]
